FAERS Safety Report 21075372 (Version 1)
Quarter: 2022Q3

REPORT INFORMATION
  Report Type: Spontaneous
  Country: CA (occurrence: CA)
  Receive Date: 20220713
  Receipt Date: 20220713
  Transmission Date: 20221026
  Serious: Yes (Hospitalization, Other)
  Sender: FDA-Public Use
  Company Number: CA-BAXTER-2022BAX014429

PATIENT
  Sex: Female

DRUGS (6)
  1. CYCLOPHOSPHAMIDE [Suspect]
     Active Substance: CYCLOPHOSPHAMIDE
     Indication: Diffuse large B-cell lymphoma
     Dosage: 2000 MG, INTRAVENOUS (NOT OTHERWISE SPECIFIED)
     Route: 042
  2. DOXORUBICIN HYDROCHLORIDE [Suspect]
     Active Substance: DOXORUBICIN HYDROCHLORIDE
     Indication: Diffuse large B-cell lymphoma
     Dosage: UNK ,ROUTE:INTRAVENOUS (NOT OTHERWISE SPECIFIED)
     Route: 042
  3. FILGRASTIM [Suspect]
     Active Substance: FILGRASTIM
     Indication: Febrile neutropenia
     Dosage: UNK UNK, QD
     Route: 058
  4. NEULASTA [Suspect]
     Active Substance: PEGFILGRASTIM
     Indication: Product used for unknown indication
     Dosage: UNK UNK, QD
     Route: 058
  5. RITUXIMAB [Suspect]
     Active Substance: RITUXIMAB
     Indication: Diffuse large B-cell lymphoma
     Dosage: UNK, ROUTE:INTRAVENOUS (NOT OTHERWISE SPECIFIED)
     Route: 042
  6. VINCRISTINE SULFATE [Suspect]
     Active Substance: VINCRISTINE SULFATE
     Indication: Diffuse large B-cell lymphoma
     Dosage: UNK ROUTE:INTRAVENOUS (NOT OTHERWISE SPECIFIED)
     Route: 042

REACTIONS (2)
  - Bone pain [Recovered/Resolved]
  - Staphylococcal bacteraemia [Recovered/Resolved]
